FAERS Safety Report 12455081 (Version 1)
Quarter: 2016Q2

REPORT INFORMATION
  Report Type: Spontaneous
  Country: US (occurrence: None)
  Receive Date: 20160609
  Receipt Date: 20160609
  Transmission Date: 20160815
  Serious: No
  Sender: FDA-Public Use
  Company Number: None

PATIENT
  Age: 61 Year
  Sex: Male

DRUGS (1)
  1. TACROLIMUS 1MG DR. REDDY^S LABORATORIES, INC. [Suspect]
     Active Substance: TACROLIMUS
     Indication: LIVER TRANSPLANT
     Dosage: 1 CAPSULE TWICE A DAY BY MOUTH
     Route: 048
     Dates: start: 20150724

REACTIONS (1)
  - Renal impairment [None]

NARRATIVE: CASE EVENT DATE: 20160602
